FAERS Safety Report 17871208 (Version 2)
Quarter: 2020Q2

REPORT INFORMATION
  Report Type: Spontaneous
  Country: FR (occurrence: FR)
  Receive Date: 20200608
  Receipt Date: 20200608
  Transmission Date: 20200714
  Serious: Yes (Other)
  Sender: FDA-Public Use
  Company Number: FR-PFIZER INC-2020220733

PATIENT
  Age: 22 Year
  Sex: Male

DRUGS (2)
  1. TIAPRIDAL [Suspect]
     Active Substance: TIAPRIDE HYDROCHLORIDE
     Dosage: UNK
     Route: 048
  2. XANAX [Suspect]
     Active Substance: ALPRAZOLAM
     Dosage: UNK
     Route: 048

REACTIONS (9)
  - Housebound [Recovered/Resolved]
  - Tachypnoea [Recovered/Resolved]
  - Drug abuse [Recovered/Resolved]
  - Tremor [Recovered/Resolved]
  - Blood lactic acid increased [Recovered/Resolved]
  - Miosis [Recovered/Resolved]
  - Musculoskeletal stiffness [Recovered/Resolved]
  - Hyperhidrosis [Recovered/Resolved]
  - Tachycardia [Recovered/Resolved]
